FAERS Safety Report 14583607 (Version 2)
Quarter: 2018Q1

REPORT INFORMATION
  Report Type: Spontaneous
  Country: US (occurrence: US)
  Receive Date: 20180228
  Receipt Date: 20180302
  Transmission Date: 20180509
  Serious: Yes (Other)
  Sender: FDA-Public Use
  Company Number: US-PFIZER INC-2018078619

PATIENT
  Age: 56 Year
  Sex: Female
  Weight: 63.5 kg

DRUGS (2)
  1. PREMARIN [Suspect]
     Active Substance: ESTROGENS, CONJUGATED
     Indication: POSTMENOPAUSE
     Dosage: 0.625 MG, 1X/DAY
     Route: 048
     Dates: start: 2001
  2. PREMARIN [Suspect]
     Active Substance: ESTROGENS, CONJUGATED
     Indication: SOFT TISSUE INJURY

REACTIONS (1)
  - Colon cancer stage IV [Unknown]

NARRATIVE: CASE EVENT DATE: 2003
